FAERS Safety Report 24784644 (Version 3)
Quarter: 2025Q1

REPORT INFORMATION
  Report Type: Report from Study
  Country: US (occurrence: US)
  Receive Date: 20241227
  Receipt Date: 20250122
  Transmission Date: 20250408
  Serious: Yes (Disabling)
  Sender: GILEAD
  Company Number: US-GILEAD-2024-0698083

PATIENT
  Sex: Female

DRUGS (2)
  1. SELADELPAR [Suspect]
     Active Substance: SELADELPAR
     Indication: Primary biliary cholangitis
     Dosage: 10 MG, QD
     Route: 048
     Dates: start: 20241204
  2. SELADELPAR [Suspect]
     Active Substance: SELADELPAR
     Dosage: 1 DOSAGE FORM, QD
     Route: 048

REACTIONS (4)
  - Weight increased [Unknown]
  - Alopecia [Unknown]
  - Headache [Recovered/Resolved]
  - Injection site bruising [Not Recovered/Not Resolved]
